FAERS Safety Report 19065076 (Version 1)
Quarter: 2021Q1

REPORT INFORMATION
  Report Type: Report from Study
  Country: US (occurrence: US)
  Receive Date: 20210326
  Receipt Date: 20210326
  Transmission Date: 20210420
  Serious: Yes (Other)
  Sender: FDA-Public Use
  Company Number: US-BAXTER-2021BAX005601

PATIENT
  Age: 51 Year
  Sex: Male

DRUGS (4)
  1. OSMITROL [Suspect]
     Active Substance: MANNITOL
     Indication: DRUG THERAPY
     Dosage: INFUSING WARMED, 25% MANNITOL INTO EITHER THE INTERNAL CAROTID OR VERTEBRAL ARTERY, 26  TREATMENTS
     Route: 013
  2. CYCLOPHOSPHAMIDE FOR INJECTION, USP [Suspect]
     Active Substance: CYCLOPHOSPHAMIDE
     Indication: GLIOBLASTOMA MULTIFORME
     Dosage: ADMINISTERED 10 TO 20 MINUTES PRIOR TO OSMOTIC BBBD
     Route: 042
  3. METHOTREXATE. [Suspect]
     Active Substance: METHOTREXATE
     Indication: GLIOBLASTOMA MULTIFORME
     Dosage: INJECTED IMMEDIATELY AFTER OSMOTIC BBBD
     Route: 013
  4. PROCARBAZINE [Suspect]
     Active Substance: PROCARBAZINE
     Indication: GLIOBLASTOMA MULTIFORME
     Dosage: BEGINNING 24 HOURS AFTER THE SECOND BBBD
     Route: 048

REACTIONS (1)
  - Partial seizures [Unknown]
